FAERS Safety Report 9270459 (Version 1)
Quarter: 2013Q2

REPORT INFORMATION
  Report Type: Spontaneous
  Country: FR (occurrence: FR)
  Receive Date: 20130503
  Receipt Date: 20130503
  Transmission Date: 20140414
  Serious: Yes (Other)
  Sender: FDA-Public Use
  Company Number: FR-PFIZER INC-2013133925

PATIENT
  Age: 50 Year
  Sex: Male

DRUGS (9)
  1. ARACYTINE [Suspect]
     Dosage: 938 MG, CYCLIC ON DAYS D1, D2, D3
     Route: 042
     Dates: start: 20120926
  2. ARACYTINE [Suspect]
     Dosage: 1876 MG, CYCLIC TWICE ON DAYS D8, D9, D10
  3. CERUBIDINE [Suspect]
     Dosage: 112 MG, CYCLIC ON DAYS D1, D2, D3
     Route: 042
     Dates: start: 20120926
  4. CERUBIDINE [Suspect]
     Dosage: 66 MG, CYCLIC ON DAYS D8, D9
     Dates: end: 20121004
  5. POSACONAZOLE [Concomitant]
     Dosage: 600 MG, 1X/DAY
     Route: 048
     Dates: start: 20120926, end: 20121102
  6. AMPHOTERICIN B [Concomitant]
     Dosage: 1125 MG, 1X/DAY
     Route: 048
     Dates: start: 20120926, end: 20121102
  7. PIPERACILLIN/TAZOBACTAM KABI [Concomitant]
     Dosage: 3 DF, 1X/DAY (12G/1500MG PER DAY)
     Dates: start: 20121005, end: 20121102
  8. DEPO-MEDROL [Concomitant]
     Dosage: UNK
     Dates: start: 20121002
  9. METHOTREXATE [Concomitant]
     Dosage: UNK
     Dates: start: 20121002

REACTIONS (2)
  - Cardiac failure acute [Recovered/Resolved]
  - Aortic valve incompetence [Recovering/Resolving]
